FAERS Safety Report 14604107 (Version 1)
Quarter: 2018Q1

REPORT INFORMATION
  Report Type: Spontaneous
  Country: NL (occurrence: NL)
  Receive Date: 20180306
  Receipt Date: 20180306
  Transmission Date: 20180509
  Serious: Yes (Life-Threatening, Other)
  Sender: FDA-Public Use
  Company Number: NL-AMGEN-NLDSP2018022858

PATIENT
  Age: 30 Year
  Sex: Female
  Weight: 87 kg

DRUGS (3)
  1. BLINCYTO [Suspect]
     Active Substance: BLINATUMOMAB
     Indication: DIFFUSE LARGE B-CELL LYMPHOMA
     Dosage: 9 MUG, QD
     Route: 065
     Dates: start: 20180126
  2. BLINCYTO [Suspect]
     Active Substance: BLINATUMOMAB
     Dosage: 20 MUG, QD
     Route: 065
     Dates: start: 20180202
  3. BLINCYTO [Suspect]
     Active Substance: BLINATUMOMAB
     Dosage: 56 MUG, QD
     Route: 065
     Dates: start: 20180209, end: 20180211

REACTIONS (3)
  - Pyrexia [Recovered/Resolved]
  - Off label use [Unknown]
  - Encephalopathy [Recovered/Resolved]

NARRATIVE: CASE EVENT DATE: 20180211
